FAERS Safety Report 12935181 (Version 1)
Quarter: 2016Q4

REPORT INFORMATION
  Report Type: Report from Study
  Country: CA (occurrence: CA)
  Receive Date: 20161114
  Receipt Date: 20161114
  Transmission Date: 20170207
  Serious: Yes (Other)
  Sender: FDA-Public Use
  Company Number: CA-ROCHE-ITM201504IM014959

PATIENT
  Age: 69 Year
  Sex: Male
  Weight: 93 kg

DRUGS (12)
  1. ACETYLCYSTEINE. [Concomitant]
     Active Substance: ACETYLCYSTEINE
  2. PANTOLOC [Concomitant]
     Active Substance: PANTOPRAZOLE SODIUM
  3. XANTOFYL [Concomitant]
  4. ASA [Concomitant]
     Active Substance: ASPIRIN
     Route: 065
  5. ZOPICLONE [Concomitant]
     Active Substance: ZOPICLONE
  6. VITAMIN C [Concomitant]
     Active Substance: ASCORBIC ACID
  7. VITAMIN D3 [Concomitant]
     Active Substance: CHOLECALCIFEROL
  8. LASIX [Concomitant]
     Active Substance: FUROSEMIDE
  9. INDOMETHACIN. [Concomitant]
     Active Substance: INDOMETHACIN
  10. ESBRIET [Suspect]
     Active Substance: PIRFENIDONE
     Indication: IDIOPATHIC PULMONARY FIBROSIS
     Route: 048
     Dates: start: 20141223
  11. ESBRIET [Suspect]
     Active Substance: PIRFENIDONE
     Route: 048
     Dates: start: 20150530
  12. SIMVASTATIN. [Concomitant]
     Active Substance: SIMVASTATIN

REACTIONS (5)
  - Erythema [Unknown]
  - Burns third degree [Not Recovered/Not Resolved]
  - Feeling hot [Unknown]
  - Pruritus [Unknown]
  - Mood swings [Unknown]

NARRATIVE: CASE EVENT DATE: 20150407
